FAERS Safety Report 20481366 (Version 1)
Quarter: 2022Q1

REPORT INFORMATION
  Report Type: Spontaneous
  Country: US (occurrence: US)
  Receive Date: 20220216
  Receipt Date: 20220216
  Transmission Date: 20220423
  Serious: No
  Sender: FDA-Public Use
  Company Number: US-LUPIN PHARMACEUTICALS INC.-2022-02112

PATIENT
  Age: 37 Year
  Sex: Female

DRUGS (2)
  1. CLOBETASOL [Suspect]
     Active Substance: CLOBETASOL
     Indication: Dermatitis contact
     Dosage: UNK, OINTMENT
     Route: 061
  2. LIDOCAINE [Suspect]
     Active Substance: LIDOCAINE
     Indication: Dermatitis contact
     Dosage: UNK
     Route: 061

REACTIONS (2)
  - Dermatitis contact [Unknown]
  - Condition aggravated [Unknown]
